FAERS Safety Report 7646787-6 (Version None)
Quarter: 2011Q3

REPORT INFORMATION
  Report Type: 
  Country: None (occurrence: None)
  Receive Date: 20110801
  Receipt Date: 20110727
  Transmission Date: 20111222
  Serious: Yes (Other)
  Sender: FDA-Public Use
  Company Number: MX-BAYER-2011-066087

PATIENT
  Age: 10 Year
  Sex: Male
  Weight: 32 kg

DRUGS (1)
  1. ANTIHEMOPHILIC FACTOR (RECOMBINANT), SUCROSE FORMULATED FS [Suspect]
     Indication: FACTOR VIII DEFICIENCY

REACTIONS (2)
  - ANTI FACTOR VIII ANTIBODY POSITIVE [None]
  - HAEMATOMA [None]
